FAERS Safety Report 11772159 (Version 1)
Quarter: 2015Q4

REPORT INFORMATION
  Report Type: Spontaneous
  Country: CA (occurrence: CA)
  Receive Date: 20151124
  Receipt Date: 20151124
  Transmission Date: 20160304
  Serious: Yes (Other)
  Sender: FDA-Public Use
  Company Number: CA-GLAXOSMITHKLINE-CA2013GSK000400

PATIENT
  Age: 20 Year
  Sex: Male
  Weight: 55 kg

DRUGS (4)
  1. REMERON [Concomitant]
     Active Substance: MIRTAZAPINE
  2. MEZAVANT [Concomitant]
     Active Substance: MESALAMINE
  3. WELLBUTRIN XL [Suspect]
     Active Substance: BUPROPION HYDROCHLORIDE
     Indication: DEPRESSION
     Dosage: 150 MG, QD
     Route: 048
     Dates: start: 20130125, end: 20130129
  4. WELLBUTRIN XL [Suspect]
     Active Substance: BUPROPION HYDROCHLORIDE
     Indication: ANXIETY
     Dosage: 300 MG, QD
     Dates: start: 20130129, end: 20130131

REACTIONS (13)
  - Suicidal ideation [Not Recovered/Not Resolved]
  - Agitation [Recovered/Resolved]
  - Anxiety [Recovered/Resolved]
  - Amnesia [Recovered/Resolved]
  - Autoscopy [Recovered/Resolved]
  - Irritability [Recovered/Resolved]
  - Incorrect dose administered [Unknown]
  - Crying [Recovered/Resolved]
  - Decreased appetite [Recovered/Resolved]
  - Crohn^s disease [Recovered/Resolved]
  - Insomnia [Recovered/Resolved]
  - Euphoric mood [Recovered/Resolved]
  - Adverse event [Unknown]

NARRATIVE: CASE EVENT DATE: 20130129
